FAERS Safety Report 7526782-8 (Version None)
Quarter: 2011Q2

REPORT INFORMATION
  Report Type: 
  Country: None (occurrence: None)
  Receive Date: 20110606
  Receipt Date: 20110526
  Transmission Date: 20111010
  Serious: Yes (Hospitalization, Other)
  Sender: FDA-Public Use
  Company Number: US-ASTRAZENECA-2010SE09683

PATIENT
  Age: 59 Year
  Sex: Female

DRUGS (1)
  1. CRESTOR [Suspect]
     Route: 048

REACTIONS (8)
  - CAROTID ARTERY STENT INSERTION [None]
  - URINARY TRACT INFECTION [None]
  - LUNG NEOPLASM MALIGNANT [None]
  - CONVULSION [None]
  - BRAIN NEOPLASM [None]
  - DRUG DOSE OMISSION [None]
  - MIGRAINE [None]
  - LUNG DISORDER [None]
